FAERS Safety Report 6160264-3 (Version None)
Quarter: 2009Q2

REPORT INFORMATION
  Report Type: 
  Country: None (occurrence: None)
  Receive Date: 20090420
  Receipt Date: 20090415
  Transmission Date: 20091009
  Serious: Yes (Life-Threatening)
  Sender: FDA-Public Use
  Company Number: D0061226A

PATIENT
  Sex: Male
  Weight: 102 kg

DRUGS (2)
  1. IMIGRAN [Suspect]
     Dosage: 50MG UNKNOWN
     Route: 048
  2. METOPROLOL SUCCINATE [Concomitant]
     Indication: MIGRAINE
     Dosage: 200MG PER DAY
     Route: 048

REACTIONS (2)
  - CHOLELITHIASIS [None]
  - TRANSAMINASES INCREASED [None]
